FAERS Safety Report 17430244 (Version 1)
Quarter: 2020Q1

REPORT INFORMATION
  Report Type: Spontaneous
  Country: US (occurrence: US)
  Receive Date: 20200218
  Receipt Date: 20200218
  Transmission Date: 20200409
  Serious: No
  Sender: FDA-Public Use
  Company Number: US-PFIZER INC-2020069692

PATIENT
  Age: 52 Year
  Sex: Female
  Weight: 104.31 kg

DRUGS (9)
  1. TRULICITY [Concomitant]
     Active Substance: DULAGLUTIDE
     Dosage: UNK (0.75MG/0.5 PEN INJCTR)
  2. FARXIGA [Concomitant]
     Active Substance: DAPAGLIFLOZIN PROPANEDIOL
     Dosage: 10 MG, UNK
  3. JANUVIA [Concomitant]
     Active Substance: SITAGLIPTIN PHOSPHATE
     Dosage: 100 MG, UNK
  4. BIOTIN [Concomitant]
     Active Substance: BIOTIN
     Dosage: 10 MG, UNK
  5. VITAMIN D [COLECALCIFEROL] [Concomitant]
     Active Substance: CHOLECALCIFEROL
     Dosage: 10 UG, UNK (400 10 MCG TABLET)
  6. IBRANCE [Suspect]
     Active Substance: PALBOCICLIB
     Indication: BREAST CANCER
     Dosage: 125 MG, CYCLIC (DAILY; 21 OUT OF 28 DAYS)
     Route: 048
  7. VITAMIN E [Concomitant]
     Active Substance: .ALPHA.-TOCOPHEROL
     Dosage: 1000 IU, UNK
  8. FASLODEX [Concomitant]
     Active Substance: FULVESTRANT
     Dosage: UNK (250MG/5ML SYRINGE)
  9. LISINOPRIL. [Concomitant]
     Active Substance: LISINOPRIL
     Dosage: 10 MG, UNK

REACTIONS (1)
  - Sinusitis [Unknown]
